FAERS Safety Report 5717505-3 (Version None)
Quarter: 2008Q2

REPORT INFORMATION
  Report Type: 
  Country: None (occurrence: None)
  Receive Date: 20080425
  Receipt Date: 20080421
  Transmission Date: 20081010
  Serious: Yes (Hospitalization)
  Sender: FDA-Public Use
  Company Number: FR-JNJFOC-20080405088

PATIENT
  Sex: Male
  Weight: 3.54 kg

DRUGS (6)
  1. HALDOL [Suspect]
     Indication: DRUG EXPOSURE DURING PREGNANCY
     Dates: start: 20070615, end: 20080312
  2. LARGACTIL [Suspect]
     Indication: DRUG EXPOSURE DURING PREGNANCY
     Dates: start: 20070615, end: 20080312
  3. VALIUM [Suspect]
     Indication: DRUG EXPOSURE DURING PREGNANCY
     Dates: start: 20070615, end: 20080312
  4. OXAZEPAM [Suspect]
     Indication: DRUG EXPOSURE DURING PREGNANCY
     Dates: start: 20070615, end: 20080312
  5. LOXAPINE HCL [Suspect]
     Indication: DRUG EXPOSURE DURING PREGNANCY
     Dates: start: 20080312, end: 20080312
  6. RIVOTRIL [Suspect]
     Indication: DRUG EXPOSURE DURING PREGNANCY
     Dates: start: 20080312, end: 20080312

REACTIONS (6)
  - APGAR SCORE LOW [None]
  - CAESAREAN SECTION [None]
  - DRUG EXPOSURE DURING PREGNANCY [None]
  - HYPOTONIA [None]
  - NEONATAL DISORDER [None]
  - SOMNOLENCE [None]
